FAERS Safety Report 16971410 (Version 2)
Quarter: 2020Q2

REPORT INFORMATION
  Report Type: Spontaneous
  Country: NZ (occurrence: NZ)
  Receive Date: 20191029
  Receipt Date: 20200612
  Transmission Date: 20200713
  Serious: Yes (Death)
  Sender: FDA-Public Use
  Company Number: NZ-MYLANLABS-2019M1102716

PATIENT
  Age: 68 Year
  Sex: Male

DRUGS (11)
  1. CLOZARIL [Suspect]
     Active Substance: CLOZAPINE
     Indication: PARKINSON^S DISEASE PSYCHOSIS
     Dosage: 25 MILLIGRAM TAB ONE MIDNIGHT TWO NOCTE
     Route: 048
     Dates: start: 201708, end: 20190930
  2. FLUDROCORTISONE [Concomitant]
     Active Substance: FLUDROCORTISONE
     Dosage: 150MCG MANE
  3. LEVODOPA/CARBIDOPA [Concomitant]
     Active Substance: CARBIDOPA\LEVODOPA
     Dosage: UNK
  4. LORAZEPAM. [Concomitant]
     Active Substance: LORAZEPAM
     Dosage: 0.5MG PRN UP TO BD
  5. CLOZARIL [Suspect]
     Active Substance: CLOZAPINE
     Indication: SCHIZOPHRENIA
     Dosage: UNK
     Route: 048
     Dates: start: 20170525
  6. KINSON [Concomitant]
     Active Substance: CARBIDOPA\LEVODOPA
     Dosage: 1.5 TABS MANE 0700, HALF TABLET QID 0900, 1300, 1500, 1700 AND 1 TABLET BD AT 1100 AND 2000 HRS
  7. HYDROXOCOBALAMIN [Concomitant]
     Active Substance: HYDROXOCOBALAMIN
     Dosage: 1 MILLIGRAM, Q3MONTHS
  8. PARACETAMOL [Concomitant]
     Active Substance: ACETAMINOPHEN
     Dosage: 2 DOSAGE FORM, QID
  9. OMEPRAZOLE. [Concomitant]
     Active Substance: OMEPRAZOLE
     Dosage: 20MG MANE
  10. CODEINE PHOSPHATE [Concomitant]
     Active Substance: CODEINE PHOSPHATE
     Dosage: 30MG 1-2 PRN UP TO Q6H
  11. MACROGOL [Concomitant]
     Active Substance: POLYETHYLENE GLYCOLS
     Dosage: UNK, PRN

REACTIONS (6)
  - Anaemia [Unknown]
  - General physical health deterioration [Unknown]
  - Pneumonia aspiration [Fatal]
  - Asthenia [Unknown]
  - Parkinson^s disease [Fatal]
  - Weight gain poor [Unknown]

NARRATIVE: CASE EVENT DATE: 20190926
